FAERS Safety Report 9301479 (Version 3)
Quarter: 2013Q3

REPORT INFORMATION
  Report Type: Spontaneous
  Country: CA (occurrence: CA)
  Receive Date: 20130521
  Receipt Date: 20130702
  Transmission Date: 20140515
  Serious: Yes (Death, Hospitalization, Other)
  Sender: FDA-Public Use
  Company Number: CA-BAXTER-2013BAX015514

PATIENT
  Age: 74 Year
  Sex: Female

DRUGS (6)
  1. DIANEAL PD4 SOLUTION WITH 1.5% DEXTROSE AND 2.5 MEQ/L CALCIUM [Suspect]
     Indication: RENAL FAILURE
     Route: 033
     Dates: end: 20130621
  2. DIANEAL PD4 SOLUTION WITH 1.5% DEXTROSE AND 2.5 MEQ/L CALCIUM [Suspect]
     Indication: NEPHROPATHY
  3. DIANEAL PD4 SOLUTION WITH 2.5% DEXTROSE AND 2.5 MEQ/L CALCIUM [Suspect]
     Indication: RENAL FAILURE
     Route: 033
     Dates: end: 20130621
  4. DIANEAL PD4 SOLUTION WITH 2.5% DEXTROSE AND 2.5 MEQ/L CALCIUM [Suspect]
     Indication: NEPHROPATHY
  5. EXTRANEAL [Suspect]
     Indication: RENAL FAILURE
     Route: 033
     Dates: end: 20130621
  6. EXTRANEAL [Suspect]
     Indication: NEPHROPATHY

REACTIONS (16)
  - Death [Fatal]
  - Blood pressure fluctuation [Recovered/Resolved]
  - Diabetes mellitus inadequate control [Unknown]
  - Dysstasia [Unknown]
  - Dysphagia [Recovered/Resolved]
  - General physical health deterioration [Unknown]
  - Myocardial infarction [Unknown]
  - Weight decreased [Recovered/Resolved]
  - Lung disorder [Unknown]
  - Cardiac disorder [Unknown]
  - Gastric disorder [Recovered/Resolved]
  - Asthenia [Recovered/Resolved]
  - Vomiting [Recovered/Resolved]
  - Hypotension [Unknown]
  - Pain [Unknown]
  - Malaise [Unknown]
